FAERS Safety Report 11377036 (Version 1)
Quarter: 2015Q3

REPORT INFORMATION
  Report Type: Spontaneous
  Country: FR (occurrence: FR)
  Receive Date: 20150813
  Receipt Date: 20150813
  Transmission Date: 20151125
  Serious: Yes (Congenital Anomaly, Other)
  Sender: FDA-Public Use
  Company Number: FR-ABBVIE-15P-056-1443284-00

PATIENT
  Sex: Female

DRUGS (3)
  1. NORVIR [Suspect]
     Active Substance: RITONAVIR
     Indication: MATERNAL EXPOSURE TIMING UNSPECIFIED
     Route: 064
  2. KIVEXA [Suspect]
     Active Substance: ABACAVIR SULFATE\LAMIVUDINE
     Indication: MATERNAL EXPOSURE TIMING UNSPECIFIED
     Route: 064
  3. PREZISTA [Suspect]
     Active Substance: DARUNAVIR ETHANOLATE
     Indication: MATERNAL EXPOSURE TIMING UNSPECIFIED
     Route: 064

REACTIONS (8)
  - Maxillonasal dysplasia [Not Recovered/Not Resolved]
  - Maxillonasal dysplasia [Unknown]
  - Nasal disorder [Unknown]
  - Foetal exposure during pregnancy [Unknown]
  - Stridor [Unknown]
  - Chondrodystrophy [Unknown]
  - Neonatal respiratory distress syndrome [Unknown]
  - Feeding disorder of infancy or early childhood [Unknown]

NARRATIVE: CASE EVENT DATE: 20150320
